FAERS Safety Report 5680187-3 (Version None)
Quarter: 2008Q1

REPORT INFORMATION
  Report Type: 
  Country: None (occurrence: None)
  Receive Date: 20080326
  Receipt Date: 20080318
  Transmission Date: 20080703
  Serious: Yes (Other)
  Sender: FDA-Public Use
  Company Number: JP-BRISTOL-MYERS SQUIBB COMPANY-14124382

PATIENT
  Sex: Male

DRUGS (1)
  1. MEVALOTIN [Suspect]
     Dosage: 1 DOSAGE FORM=1 TABLET.

REACTIONS (4)
  - ACNE [None]
  - ANAEMIA [None]
  - LARGE INTESTINE PERFORATION [None]
  - MALAISE [None]
